FAERS Safety Report 7974712-7 (Version None)
Quarter: 2011Q4

REPORT INFORMATION
  Report Type: 
  Country: None (occurrence: None)
  Receive Date: 20111213
  Receipt Date: 20111206
  Transmission Date: 20120403
  Serious: Yes (Other)
  Sender: FDA-Public Use
  Company Number: PHEH2011US011080

PATIENT

DRUGS (1)
  1. GLEEVEC [Suspect]

REACTIONS (1)
  - PARALYSIS [None]
